FAERS Safety Report 11676966 (Version 1)
Quarter: 2015Q4

REPORT INFORMATION
  Report Type: Spontaneous
  Country: DE (occurrence: DE)
  Receive Date: 20151028
  Receipt Date: 20151028
  Transmission Date: 20160304
  Serious: Yes (Hospitalization)
  Sender: FDA-Public Use
  Company Number: DE-EMD SERONO-7083757

PATIENT
  Sex: Female
  Weight: 1 kg

DRUGS (1)
  1. REBIF [Suspect]
     Active Substance: INTERFERON BETA-1A
     Indication: MULTIPLE SCLEROSIS
     Route: 064

REACTIONS (8)
  - Premature baby [Recovered/Resolved]
  - Pulmonary valve stenosis [Recovered/Resolved]
  - Cardio-respiratory distress [Recovered/Resolved]
  - Body temperature fluctuation [Recovered/Resolved]
  - Hyperbilirubinaemia [Recovered/Resolved]
  - Foetal exposure during pregnancy [Recovered/Resolved]
  - Feeding disorder of infancy or early childhood [Recovered/Resolved]
  - Patent ductus arteriosus [Recovered/Resolved]
